FAERS Safety Report 8447543-1 (Version None)
Quarter: 2012Q2

REPORT INFORMATION
  Report Type: 
  Country: None (occurrence: None)
  Receive Date: 20120619
  Receipt Date: 20120604
  Transmission Date: 20120825
  Serious: Yes (Death)
  Sender: FDA-Public Use
  Company Number: US-MYLANLABS-2011S1006869

PATIENT
  Age: 45 Year
  Sex: Male
  Weight: 124.74 kg

DRUGS (18)
  1. FENTANYL-100 [Suspect]
     Indication: PAIN
     Dosage: PRESCRIBED Q72H
     Route: 062
     Dates: start: 20090326, end: 20090330
  2. VICODIN [Concomitant]
     Dosage: PAIN
     Route: 048
  3. METOPROLOL TARTRATE [Concomitant]
     Route: 048
  4. XANAX [Concomitant]
  5. LISINOPRIL [Concomitant]
     Route: 048
  6. PROAIR HFA [Concomitant]
  7. OMEPRAZOLE [Concomitant]
     Route: 048
  8. METFORMIN HCL [Concomitant]
     Route: 048
  9. GLIPIZIDE [Concomitant]
     Route: 048
  10. CELEXA [Concomitant]
     Route: 048
  11. CITALOPRAM [Concomitant]
  12. HYDROCODONE BITARTRATE AND ACETAMINOPHEN [Suspect]
  13. ATIVAN [Concomitant]
  14. ADVAIR HFA [Concomitant]
  15. NOVOLIN R [Concomitant]
  16. ACETAMINOPHEN AND HYDROCODONE BITARTRATE [Concomitant]
  17. ACETAMINOPHEN AND HYDROCODONE BITARTRATE [Concomitant]
  18. HYDROXYZINE [Concomitant]

REACTIONS (2)
  - MULTIPLE DRUG OVERDOSE [None]
  - TOXICITY TO VARIOUS AGENTS [None]
